FAERS Safety Report 11300178 (Version 1)
Quarter: 2015Q3

REPORT INFORMATION
  Report Type: Spontaneous
  Country: US (occurrence: US)
  Receive Date: 20150722
  Receipt Date: 20150722
  Transmission Date: 20151125
  Serious: No
  Sender: FDA-Public Use
  Company Number: US-ELI_LILLY_AND_COMPANY-US201305003405

PATIENT
  Age: 73 Year
  Sex: Male

DRUGS (15)
  1. HUMATROPE [Suspect]
     Active Substance: SOMATROPIN
     Indication: DWARFISM
     Dosage: 0.4 MG, QD
     Route: 058
     Dates: start: 201002
  2. NIFEDIPINE. [Concomitant]
     Active Substance: NIFEDIPINE
     Dosage: 30 MG, QID
  3. VYTORIN [Concomitant]
     Active Substance: EZETIMIBE\SIMVASTATIN
  4. AMBIEN [Concomitant]
     Active Substance: ZOLPIDEM TARTRATE
  5. ANDROGEL [Concomitant]
     Active Substance: TESTOSTERONE
  6. METFORMIN [Concomitant]
     Active Substance: METFORMIN HYDROCHLORIDE
     Dosage: 1000 MG, BID
  7. ALPRAZOLAM. [Concomitant]
     Active Substance: ALPRAZOLAM
  8. KLOR-CON [Concomitant]
     Active Substance: POTASSIUM CHLORIDE
  9. FISH OIL [Concomitant]
     Active Substance: FISH OIL
  10. COZAAR [Concomitant]
     Active Substance: LOSARTAN POTASSIUM
  11. NOVOLOG [Concomitant]
     Active Substance: INSULIN ASPART
  12. PREVACID [Concomitant]
     Active Substance: LANSOPRAZOLE
  13. OMEPRAZOLE. [Concomitant]
     Active Substance: OMEPRAZOLE
  14. GLIPIZIDE. [Concomitant]
     Active Substance: GLIPIZIDE
     Dosage: 10 MG, BID
  15. LEVOTHYROXINE. [Concomitant]
     Active Substance: LEVOTHYROXINE
     Dosage: 50 UG, UNK

REACTIONS (2)
  - Asthenia [Recovering/Resolving]
  - Blood glucose increased [Recovering/Resolving]

NARRATIVE: CASE EVENT DATE: 20130405
